FAERS Safety Report 10227461 (Version 1)
Quarter: 2014Q2

REPORT INFORMATION
  Report Type: Spontaneous
  Country: US (occurrence: US)
  Receive Date: 20140610
  Receipt Date: 20140610
  Transmission Date: 20141212
  Serious: Yes (Other)
  Sender: FDA-Public Use
  Company Number: PHHY2014US069305

PATIENT
  Age: 34 Year
  Sex: Female

DRUGS (4)
  1. METHYLPHENIDATE [Suspect]
     Indication: NARCOLEPSY
  2. IMIPRAMINE [Suspect]
     Indication: NARCOLEPSY
  3. PEMOLINE [Suspect]
     Indication: NARCOLEPSY
  4. MODAFINIL [Suspect]
     Indication: NARCOLEPSY

REACTIONS (3)
  - Substance-induced psychotic disorder [Unknown]
  - Drug intolerance [Unknown]
  - Bipolar disorder [Unknown]
